FAERS Safety Report 9699898 (Version 2)
Quarter: 2015Q2

REPORT INFORMATION
  Report Type: Spontaneous
  Country: TH (occurrence: TH)
  Receive Date: 20131121
  Receipt Date: 20150515
  Transmission Date: 20150821
  Serious: Yes (Other)
  Sender: FDA-Public Use
  Company Number: PHHY2013TH130512

PATIENT
  Age: 42 Year
  Sex: Female

DRUGS (3)
  1. FOLINIC ACID [Suspect]
     Active Substance: LEUCOVORIN
     Indication: ECTOPIC PREGNANCY
     Dosage: 5 MG, QD
     Route: 065
  2. POTASSIUM CHLORIDE. [Suspect]
     Active Substance: POTASSIUM CHLORIDE
     Indication: ECTOPIC PREGNANCY
     Route: 065
  3. METHOTREXATE [Suspect]
     Active Substance: METHOTREXATE
     Indication: ECTOPIC PREGNANCY
     Dosage: 50 MG/M2, UNK
     Route: 030

REACTIONS (6)
  - Hypovolaemic shock [Recovered/Resolved]
  - Vaginal haemorrhage [Recovered/Resolved]
  - Disseminated intravascular coagulation [Recovered/Resolved]
  - Cervix haemorrhage uterine [Recovered/Resolved]
  - Maternal exposure during pregnancy [Unknown]
  - Renal tubular necrosis [Recovered/Resolved]
